FAERS Safety Report 9079198 (Version 1)
Quarter: 2013Q1

REPORT INFORMATION
  Report Type: Spontaneous
  Country: PT (occurrence: PT)
  Receive Date: 20130130
  Receipt Date: 20130130
  Transmission Date: 20140127
  Serious: Yes (Other)
  Sender: FDA-Public Use
  Company Number: PT-009507513-1301PRT011894

PATIENT
  Age: 35 Year
  Sex: Female

DRUGS (2)
  1. IMPLANON NXT [Suspect]
     Dosage: UNK
     Dates: start: 20121217, end: 20121231
  2. IMPLANON NXT [Suspect]
     Dosage: UNK
     Dates: end: 20121217

REACTIONS (4)
  - Paraesthesia [Recovered/Resolved]
  - Oedema [Recovered/Resolved]
  - Inflammation [Recovered/Resolved]
  - Abscess [Recovered/Resolved]
